FAERS Safety Report 21411367 (Version 5)
Quarter: 2022Q4

REPORT INFORMATION
  Report Type: Spontaneous
  Country: US (occurrence: US)
  Receive Date: 20221005
  Receipt Date: 20221222
  Transmission Date: 20230113
  Serious: No
  Sender: FDA-Public Use
  Company Number: US-PFIZER INC-202201203849

PATIENT
  Age: 70 Year
  Sex: Female
  Weight: 60.33 kg

DRUGS (1)
  1. IBRANCE [Suspect]
     Active Substance: PALBOCICLIB
     Indication: Breast cancer metastatic
     Dosage: 1 TABLET NIGHTLY BETWEEN 8:00-8:30PM DAILY FOR 3 WEEKS AND THEN OFF FOR 1 WEEK
     Route: 048

REACTIONS (14)
  - Abdominal pain [Unknown]
  - Constipation [Recovered/Resolved]
  - Pain [Unknown]
  - Neck pain [Unknown]
  - Spinal pain [Unknown]
  - Nasopharyngitis [Unknown]
  - Pyrexia [Unknown]
  - Blood potassium decreased [Unknown]
  - Eating disorder [Unknown]
  - Bronchitis [Unknown]
  - Red blood cell count abnormal [Unknown]
  - White blood cell count abnormal [Unknown]
  - Weight decreased [Unknown]
  - Dysstasia [Unknown]
